FAERS Safety Report 5811827-3 (Version None)
Quarter: 2008Q3

REPORT INFORMATION
  Report Type: 
  Country: None (occurrence: None)
  Receive Date: 20080716
  Receipt Date: 20080707
  Transmission Date: 20090109
  Serious: Yes (Hospitalization)
  Sender: FDA-Public Use
  Company Number: SE-JNJFOC-20080702286

PATIENT
  Age: 30 Year
  Sex: Female

DRUGS (2)
  1. REMICADE [Suspect]
     Indication: PSORIATIC ARTHROPATHY
     Route: 042
  2. METOJECT [Suspect]
     Indication: PSORIATIC ARTHROPATHY

REACTIONS (2)
  - BLOOD GLUCOSE INCREASED [None]
  - SEPSIS [None]
